FAERS Safety Report 4892416-4 (Version None)
Quarter: 2006Q1

REPORT INFORMATION
  Report Type: 
  Country: None (occurrence: None)
  Receive Date: 20060125
  Receipt Date: 20060125
  Transmission Date: 20060701
  Serious: Yes (Hospitalization)
  Sender: FDA-Public Use
  Company Number: None

PATIENT
  Age: 46 Year
  Sex: Male

DRUGS (7)
  1. METHOTREXATE [Suspect]
     Indication: ADULT T-CELL LYMPHOMA/LEUKAEMIA
     Dosage: OVER 24 HOURS CONT IV
     Route: 042
     Dates: start: 20051108, end: 20051109
  2. METHOTREXATE [Suspect]
     Indication: NON-HODGKIN'S LYMPHOMA
     Dosage: OVER 24 HOURS CONT IV
     Route: 042
     Dates: start: 20051108, end: 20051109
  3. CIPRO [Concomitant]
  4. ACYCLOVIR [Concomitant]
  5. FLUCONAZOLE [Concomitant]
  6. ATIVAN [Concomitant]
  7. DECADRON [Concomitant]

REACTIONS (1)
  - RENAL FAILURE [None]
